FAERS Safety Report 26028512 (Version 2)
Quarter: 2025Q4

REPORT INFORMATION
  Report Type: Report from Study
  Country: US (occurrence: US)
  Receive Date: 20251111
  Receipt Date: 20251215
  Transmission Date: 20260117
  Serious: No
  Sender: MERCK SHARP & DOHME LLC
  Company Number: US-009507513-2346644

PATIENT
  Sex: Female
  Weight: 93.9 kg

DRUGS (13)
  1. WINREVAIR [Suspect]
     Active Substance: SOTATERCEPT-CSRK
     Indication: Pulmonary arterial hypertension
     Dosage: 0.7MG/KG/ EVERY 3 WEEKS
     Route: 058
     Dates: start: 20250128
  2. WINREVAIR [Suspect]
     Active Substance: SOTATERCEPT-CSRK
  3. WINREVAIR [Suspect]
     Active Substance: SOTATERCEPT-CSRK
  4. WINREVAIR [Suspect]
     Active Substance: SOTATERCEPT-CSRK
  5. TREPROSTINIL SODIUM [Suspect]
     Active Substance: TREPROSTINIL SODIUM
     Indication: Pulmonary arterial hypertension
     Dosage: CONTINUOUS INTRAVENOUS HOME INFUSION; FORMULATION: 2.5 MG/ML
     Route: 042
     Dates: start: 202011, end: 20250929
  6. TREPROSTINIL SODIUM [Suspect]
     Active Substance: TREPROSTINIL SODIUM
     Indication: Pulmonary arterial hypertension
     Dosage: CONTINUOUS INTRAVENOUS, FORMULATION: 2.5 MG/ML
     Route: 042
  7. TADALAFIL [Suspect]
     Active Substance: TADALAFIL
     Indication: Pulmonary arterial hypertension
     Dosage: 40 MG DAILY
     Route: 048
     Dates: start: 20190110
  8. AMBRISENTAN [Suspect]
     Active Substance: AMBRISENTAN
     Indication: Pulmonary arterial hypertension
     Dosage: 10 MG DAILY
     Route: 048
     Dates: start: 20190221
  9. UPTRAVI [Suspect]
     Active Substance: SELEXIPAG
     Indication: Pulmonary arterial hypertension
     Dosage: UP TITRATING DOSE BID
     Route: 048
     Dates: end: 20250807
  10. RETIN-A [Concomitant]
     Active Substance: TRETINOIN
  11. IBUPROFEN IB [Concomitant]
     Active Substance: IBUPROFEN
  12. JENCYCLA [Concomitant]
     Active Substance: NORETHINDRONE
  13. ZYRTEC [Concomitant]
     Active Substance: CETIRIZINE HYDROCHLORIDE

REACTIONS (5)
  - Diarrhoea [Recovered/Resolved]
  - Epistaxis [Recovered/Resolved]
  - Product administered to patient of inappropriate age [Unknown]
  - Fatigue [Unknown]
  - Headache [Not Recovered/Not Resolved]

NARRATIVE: CASE EVENT DATE: 20250101
